FAERS Safety Report 7048276-9 (Version None)
Quarter: 2010Q4

REPORT INFORMATION
  Report Type: 
  Country: None (occurrence: None)
  Receive Date: 20101014
  Receipt Date: 20101014
  Transmission Date: 20110411
  Serious: No
  Sender: FDA-Public Use
  Company Number: None

PATIENT
  Age: 50 Year
  Sex: Female
  Weight: 51.2565 kg

DRUGS (1)
  1. RECLAST [Suspect]
     Indication: OSTEOPOROSIS
     Dosage: YEARLY IV DRIP
     Route: 041
     Dates: start: 20091119

REACTIONS (6)
  - ALOPECIA [None]
  - ARTHRITIS [None]
  - BONE PAIN [None]
  - DERMATITIS CONTACT [None]
  - MALAISE [None]
  - RHEUMATOID ARTHRITIS [None]
